FAERS Safety Report 9451204 (Version 1)
Quarter: 2013Q3

REPORT INFORMATION
  Report Type: Spontaneous
  Country: JP (occurrence: JP)
  Receive Date: 20130809
  Receipt Date: 20130809
  Transmission Date: 20140515
  Serious: Yes (Disabling)
  Sender: FDA-Public Use
  Company Number: JP-ABBOTT-13P-087-1130202-00

PATIENT
  Age: 40 Year
  Sex: Female

DRUGS (4)
  1. LEUPLIN [Suspect]
     Indication: PREOPERATIVE HORMONE TREATMENT
     Route: 058
     Dates: start: 20120521, end: 20120618
  2. LEUPLIN [Suspect]
     Indication: ENDOMETRIOSIS
  3. LEUPLIN [Suspect]
     Indication: OVARIAN CYST
  4. LEUPLIN [Suspect]
     Indication: PRODUCT USED FOR UNKNOWN INDICATION
     Route: 058
     Dates: start: 20120717, end: 20120717

REACTIONS (1)
  - Carpal tunnel syndrome [Recovered/Resolved]
